FAERS Safety Report 7715718-2 (Version None)
Quarter: 2011Q3

REPORT INFORMATION
  Report Type: 
  Country: None (occurrence: None)
  Receive Date: 20110829
  Receipt Date: 20110825
  Transmission Date: 20111222
  Serious: Yes (Other)
  Sender: FDA-Public Use
  Company Number: JP-PFIZER INC-2011156271

PATIENT
  Age: 56 Year
  Sex: Male

DRUGS (16)
  1. TEGRETOL [Concomitant]
     Indication: EPILEPSY
     Dosage: 400 MG, 2X/DAY
     Route: 048
  2. FAMOTIDINE [Concomitant]
     Dosage: 20 MG, 2X/DAY
     Route: 048
  3. LOXONIN [Concomitant]
     Dosage: 60 MG, 2X/DAY
     Route: 048
  4. VARENICLINE TARTRATE [Suspect]
     Dosage: 0.5 MG, 2X/DAY
     Route: 048
     Dates: start: 20110422, end: 20110425
  5. TS-1 [Concomitant]
     Dosage: 60 MG, 2X/DAY
     Route: 048
  6. VARENICLINE TARTRATE [Suspect]
     Dosage: 1 MG, 2X/DAY
     Route: 048
     Dates: start: 20110426, end: 20110510
  7. HALCION [Concomitant]
     Indication: INSOMNIA
     Dosage: 0.25 MG, AS NEEDED
     Route: 048
  8. DIAZEPAM [Concomitant]
     Indication: INSOMNIA
     Dosage: 2 MG, 3X/DAY
     Route: 048
  9. VARENICLINE TARTRATE [Suspect]
     Indication: SMOKING CESSATION THERAPY
     Dosage: 0.5 MG, 1X/DAY
     Route: 048
     Dates: start: 20110419, end: 20110421
  10. TANNALBIN [Concomitant]
     Dosage: 1 G, 3X/DAY
  11. MUCOSTA [Concomitant]
     Dosage: 100 MG, 2X/DAY
     Route: 048
  12. GABAPENTIN [Concomitant]
     Indication: EPILEPSY
     Dosage: 400 MG, 3X/DAY
     Route: 048
  13. RISUMIC [Concomitant]
     Dosage: 10 MG, 2X/DAY
     Route: 048
  14. ACETAMINOPHEN [Concomitant]
     Dosage: 400 MG, 2X/DAY
     Route: 048
  15. CLONAZEPAM [Concomitant]
     Indication: EPILEPSY
     Dosage: 2.5 MG, 2X/DAY
     Route: 048
  16. PHENYTOIN SODIUM CAP [Concomitant]
     Indication: EPILEPSY
     Dosage: 75 MG, 2X/DAY
     Route: 048

REACTIONS (3)
  - LOSS OF CONSCIOUSNESS [None]
  - FALL [None]
  - INCORRECT DOSE ADMINISTERED [None]
